FAERS Safety Report 4739896-2 (Version None)
Quarter: 2005Q3

REPORT INFORMATION
  Report Type: 
  Country: None (occurrence: None)
  Receive Date: 20050810
  Receipt Date: 20011107
  Transmission Date: 20060218
  Serious: No
  Sender: FDA-Public Use
  Company Number: US-GLAXOSMITHKLINE-A0355378A

PATIENT
  Age: 29 Year
  Sex: Female
  Weight: 70.29 kg

DRUGS (3)
  1. PAXIL [Suspect]
     Indication: DEPRESSION
     Route: 048
  2. PAXIL [Suspect]
     Dosage: 20MG PER DAY
     Route: 048
  3. PAXIL [Suspect]
     Dosage: 20MG PER DAY
     Route: 048

REACTIONS (7)
  - AGITATION [None]
  - DIZZINESS [None]
  - DRUG WITHDRAWAL SYNDROME [None]
  - HALLUCINATION, AUDITORY [None]
  - PARAESTHESIA [None]
  - SENSORY DISTURBANCE [None]
  - WEIGHT INCREASED [None]
